FAERS Safety Report 10681221 (Version 3)
Quarter: 2015Q1

REPORT INFORMATION
  Report Type: Spontaneous
  Country: JP (occurrence: JP)
  Receive Date: 20141230
  Receipt Date: 20150218
  Transmission Date: 20150720
  Serious: Yes (Hospitalization)
  Sender: FDA-Public Use
  Company Number: PHHY2014JP169165

PATIENT
  Age: 64 Year
  Sex: Female

DRUGS (2)
  1. VINORELBINE [Concomitant]
     Active Substance: VINORELBINE\VINORELBINE TARTRATE
     Indication: METASTASES TO BONE
     Dosage: UNK
     Route: 065
     Dates: start: 2008
  2. ZOMETA [Suspect]
     Active Substance: ZOLEDRONIC ACID
     Indication: METASTASES TO BONE
     Dosage: 5 MG UNK
     Route: 041
     Dates: start: 200906, end: 201009

REACTIONS (6)
  - Osteonecrosis of jaw [Recovered/Resolved]
  - Oral cavity fistula [Recovering/Resolving]
  - Gingival swelling [Recovering/Resolving]
  - Erythema [Recovering/Resolving]
  - Gingival pain [Recovering/Resolving]
  - Purulent discharge [Recovering/Resolving]

NARRATIVE: CASE EVENT DATE: 201009
